FAERS Safety Report 4568991-6 (Version None)
Quarter: 2005Q1

REPORT INFORMATION
  Report Type: 
  Country: None (occurrence: None)
  Receive Date: 20050126
  Receipt Date: 20050126
  Transmission Date: 20050727
  Serious: Yes (Other)
  Sender: FDA-Public Use
  Company Number: None

PATIENT
  Age: 79 Year
  Sex: Male
  Weight: 98 kg

DRUGS (2)
  1. SINEMET [Suspect]
     Indication: APRAXIA
     Dosage: 1 TABLET, BID, ORAL
     Route: 048
     Dates: start: 20040219, end: 20040223
  2. CARBIDOPA 10/LEVODOPA [Concomitant]

REACTIONS (2)
  - NAUSEA [None]
  - VOMITING [None]
